FAERS Safety Report 11760917 (Version 1)
Quarter: 2015Q4

REPORT INFORMATION
  Report Type: Spontaneous
  Country: US (occurrence: US)
  Receive Date: 20151120
  Receipt Date: 20151120
  Transmission Date: 20160304
  Serious: Yes (Other)
  Sender: FDA-Public Use
  Company Number: US-ELI_LILLY_AND_COMPANY-US201212000727

PATIENT
  Age: 64 Year
  Sex: Female

DRUGS (6)
  1. LIDODERM [Concomitant]
     Active Substance: LIDOCAINE
  2. TOPAMAX [Concomitant]
     Active Substance: TOPIRAMATE
  3. SYNTHROID [Concomitant]
     Active Substance: LEVOTHYROXINE SODIUM
  4. FORTEO [Suspect]
     Active Substance: TERIPARATIDE
     Indication: OSTEOPOROSIS
     Dosage: UNK
     Dates: start: 20121101
  5. LOTREL [Concomitant]
     Active Substance: AMLODIPINE BESYLATE\BENAZEPRIL HYDROCHLORIDE
  6. ACTIVELLA [Concomitant]
     Active Substance: ESTRADIOL\NORETHINDRONE ACETATE

REACTIONS (2)
  - Arthralgia [Unknown]
  - Pain [Unknown]

NARRATIVE: CASE EVENT DATE: 201211
